FAERS Safety Report 6865943-8 (Version None)
Quarter: 2010Q3

REPORT INFORMATION
  Report Type: 
  Country: None (occurrence: None)
  Receive Date: 20100719
  Receipt Date: 20100706
  Transmission Date: 20110219
  Serious: Yes (Other)
  Sender: FDA-Public Use
  Company Number: 7010181

PATIENT
  Age: 40 Year
  Sex: Female
  Weight: 54 kg

DRUGS (1)
  1. REBIF [Suspect]
     Dates: start: 20100101

REACTIONS (4)
  - APATHY [None]
  - FATIGUE [None]
  - VERTIGO [None]
  - WEIGHT DECREASED [None]
